FAERS Safety Report 13358747 (Version 1)
Quarter: 2017Q1

REPORT INFORMATION
  Report Type: Spontaneous
  Country: US (occurrence: US)
  Receive Date: 20170322
  Receipt Date: 20170322
  Transmission Date: 20170429
  Serious: No
  Sender: FDA-Public Use
  Company Number: US-009507513-1703USA001005

PATIENT
  Age: 86 Year
  Sex: Female

DRUGS (4)
  1. ARICEPT [Concomitant]
     Active Substance: DONEPEZIL HYDROCHLORIDE
  2. FOSAMAX [Suspect]
     Active Substance: ALENDRONATE SODIUM
     Indication: OSTEOPOROSIS PROPHYLAXIS
     Dosage: ONE 40 MG TABLET, ONCE WEEKLY
     Route: 048
     Dates: start: 2007, end: 2014
  3. FOSAMAX [Suspect]
     Active Substance: ALENDRONATE SODIUM
     Dosage: UNK
     Route: 048
     Dates: start: 201701
  4. PRINIVIL [Concomitant]
     Active Substance: LISINOPRIL

REACTIONS (2)
  - Product use issue [Unknown]
  - Bone disorder [Not Recovered/Not Resolved]

NARRATIVE: CASE EVENT DATE: 2007
